FAERS Safety Report 26136823 (Version 1)
Quarter: 2025Q4

REPORT INFORMATION
  Report Type: Spontaneous
  Country: US (occurrence: None)
  Receive Date: 20251209
  Receipt Date: 20251209
  Transmission Date: 20260118
  Serious: Yes (Other)
  Sender: AMERICAN REGENT
  Company Number: US-AMERICAN REGENT INC-2024004518

PATIENT
  Age: 67 Year
  Sex: Female
  Weight: 66.7 kg

DRUGS (4)
  1. VENOFER [Suspect]
     Active Substance: IRON SUCROSE
     Indication: Iron deficiency
     Dosage: UNK, SINGLE
     Route: 065
     Dates: start: 20241017, end: 20241017
  2. VENOFER [Suspect]
     Active Substance: IRON SUCROSE
     Dosage: 400 MILLIGRAM IN NORMAL SALINE 250 ML OVER 2.5 HOURS
     Dates: start: 20241024, end: 20241024
  3. FAMOTIDINE [Concomitant]
     Active Substance: FAMOTIDINE
     Indication: Premedication
     Dosage: 20 MILLIGRAM, SINGLE
     Dates: start: 20241024, end: 20241024
  4. METHYLPREDNISOLONE [Concomitant]
     Active Substance: METHYLPREDNISOLONE
     Indication: Premedication
     Dosage: 125 MILLIGRAM, SINGLE
     Dates: start: 20241024, end: 20241024

REACTIONS (2)
  - Hypersensitivity [Recovered/Resolved]
  - Off label use [Unknown]

NARRATIVE: CASE EVENT DATE: 20241001
